FAERS Safety Report 7655845-1 (Version None)
Quarter: 2011Q3

REPORT INFORMATION
  Report Type: 
  Country: None (occurrence: None)
  Receive Date: 20110804
  Receipt Date: 20110722
  Transmission Date: 20111222
  Serious: Yes (Hospitalization, Other)
  Sender: FDA-Public Use
  Company Number: JP-TYCO HEALTHCARE/MALLINCKRODT-T201100686

PATIENT
  Sex: Male
  Weight: 54.3 kg

DRUGS (13)
  1. LEVOTHYROXINE SODIUM [Concomitant]
     Dosage: 100 ?G, QD
     Dates: start: 20080813
  2. DECADRON [Concomitant]
     Dosage: 3.3 MG ONCE FOR 1 WEEK
     Dates: start: 20101124
  3. LOPERAMIDE HCL [Concomitant]
     Dosage: 2 MG, BID
     Dates: start: 20110115
  4. LOCOID                             /00028605/ [Concomitant]
     Dosage: A PROPER DOSE AS NEEDED
     Dates: start: 20101109
  5. TS 1 [Concomitant]
     Dosage: 4 CUP BID, DAILY X 2 WEEKS, STOP X 1 WEEK; REPEAT
     Dates: start: 20101104
  6. METHADONE HYDROCHLORIDE [Suspect]
     Indication: CANCER PAIN
     Dosage: 15 MG, TID
     Route: 048
     Dates: start: 20101102
  7. GEMZAR [Concomitant]
     Dosage: 1200 MG ONCE FOR 1 WEEK
     Dates: start: 20101124
  8. TOPOTECAN [Concomitant]
     Dosage: 100 MG, ONCE EVERY 2 WEEKS
     Dates: start: 20110509
  9. ETODOLAC [Concomitant]
     Dosage: 400 MG, BID
     Dates: start: 20090218
  10. TAGAMET                            /00397401/ [Concomitant]
     Dosage: 800 MG, BID
     Dates: start: 20090218
  11. RAMELTEON [Concomitant]
     Dosage: 0.3 ONCE  FOR 1 WEEK
     Dates: start: 20101124
  12. CISPLATIN [Concomitant]
     Dosage: 80 MG, ONCE EVERY 2 WEEKS
     Dates: start: 20110509
  13. METHYCOBAL                         /00324901/ [Concomitant]
     Dosage: 1500 MG, TID
     Dates: start: 20110209

REACTIONS (3)
  - DRUG THERAPY CHANGED [None]
  - METASTASES TO LIVER [None]
  - LIVER DISORDER [None]
